FAERS Safety Report 6379297-7 (Version None)
Quarter: 2009Q3

REPORT INFORMATION
  Report Type: 
  Country: None (occurrence: None)
  Receive Date: 20090923
  Receipt Date: 20090923
  Transmission Date: 20100115
  Serious: Yes (Life-Threatening, Hospitalization)
  Sender: FDA-Public Use
  Company Number: None

PATIENT
  Age: 50 Year
  Sex: Male
  Weight: 72 kg

DRUGS (8)
  1. ENOXAPARIN SODIUM [Suspect]
     Indication: DEEP VEIN THROMBOSIS
     Dosage: 70 MG SQ BID
  2. ENOXAPARIN SODIUM [Suspect]
     Indication: PULMONARY EMBOLISM
     Dosage: 70 MG SQ BID
  3. OXYCODONE [Concomitant]
  4. COMPAZINE [Concomitant]
  5. HADOLOL [Concomitant]
  6. HYDROCHLOROTHIAZIDE [Concomitant]
  7. ATAVOX [Concomitant]
  8. CIPROFLOXACIN [Concomitant]

REACTIONS (3)
  - COMPARTMENT SYNDROME [None]
  - HAEMORRHAGE [None]
  - HEPATIC FUNCTION ABNORMAL [None]
